FAERS Safety Report 14805131 (Version 1)
Quarter: 2018Q2

REPORT INFORMATION
  Report Type: Spontaneous
  Country: GB (occurrence: US)
  Receive Date: 20180425
  Receipt Date: 20180425
  Transmission Date: 20180711
  Serious: Yes (Life-Threatening, Hospitalization)
  Sender: FDA-Public Use
  Company Number: GB-AUROBINDO-AUR-APL-2018-021710

PATIENT
  Sex: Male

DRUGS (1)
  1. MOXIFLOXACIN TABLET [Suspect]
     Active Substance: MOXIFLOXACIN
     Indication: PNEUMONIA
     Dosage: 1400 MG, QD
     Route: 048

REACTIONS (3)
  - Torsade de pointes [Unknown]
  - Cardiac arrest [Unknown]
  - Blood potassium decreased [Unknown]
